FAERS Safety Report 25829614 (Version 3)
Quarter: 2025Q3

REPORT INFORMATION
  Report Type: Other
  Country: US (occurrence: US)
  Receive Date: 20250922
  Receipt Date: 20250929
  Transmission Date: 20251021
  Serious: No
  Sender: TRAVERE THERAPEUTICS
  Company Number: US-TRAVERE-2025TVT01238

PATIENT
  Age: 45 Year
  Sex: Female

DRUGS (4)
  1. FILSPARI [Suspect]
     Active Substance: SPARSENTAN
     Indication: IgA nephropathy
     Route: 048
     Dates: start: 20250711
  2. FILSPARI [Suspect]
     Active Substance: SPARSENTAN
     Dosage: MIXED 200MG AND 400MG TABLETS/2 TABLETS DOSES COULD HAVE BEEN 400MG, 600MG, OR 800MG
     Route: 048
  3. FILSPARI [Suspect]
     Active Substance: SPARSENTAN
     Route: 048
  4. IRBESARTAN [Concomitant]
     Active Substance: IRBESARTAN

REACTIONS (11)
  - Abdominal pain upper [Recovered/Resolved]
  - Chills [Recovered/Resolved]
  - Hypersensitivity [Unknown]
  - Blood potassium increased [Unknown]
  - Blood pressure increased [Unknown]
  - Headache [Unknown]
  - Bone pain [Unknown]
  - Arthralgia [Unknown]
  - Pruritus [Unknown]
  - Off label use [Unknown]
  - White matter lesion [Unknown]

NARRATIVE: CASE EVENT DATE: 20250805
